FAERS Safety Report 8801830 (Version 1)
Quarter: 2012Q4

REPORT INFORMATION
  Report Type: 
  Country: CH (occurrence: CH)
  Receive Date: 20120921
  Receipt Date: 20120921
  Transmission Date: 20130627
  Serious: Yes (Hospitalization)
  Sender: FDA-Public Use
  Company Number: CH-TEVA-358605ISR

PATIENT
  Age: 78 Year
  Sex: Male

DRUGS (3)
  1. CIPROFLOXACIN [Suspect]
     Indication: URINARY TRACT INFECTION
     Route: 065
  2. OCTREOTIDE [Suspect]
     Indication: BLOOD GROWTH HORMONE INCREASED
     Route: 065
  3. COTRIMOXAZOLE [Suspect]
     Indication: URINARY TRACT INFECTION
     Route: 065

REACTIONS (6)
  - Renal failure acute [Recovering/Resolving]
  - Tubulointerstitial nephritis [Recovering/Resolving]
  - Hyperoxaluria [Recovering/Resolving]
  - Nephritis allergic [Recovering/Resolving]
  - Weight decreased [None]
  - Anaemia [None]
